FAERS Safety Report 5683868-0 (Version None)
Quarter: 2008Q1

REPORT INFORMATION
  Report Type: 
  Country: None (occurrence: None)
  Receive Date: 20080326
  Receipt Date: 20080313
  Transmission Date: 20080703
  Serious: Yes (Hospitalization)
  Sender: FDA-Public Use
  Company Number: LTI2007A00344

PATIENT
  Age: 70 Year
  Sex: Male

DRUGS (10)
  1. ACTOS [Suspect]
     Indication: TYPE 2 DIABETES MELLITUS
     Dosage: 15 MG (15 MG, 1 IN 1 D) ORAL; 30 MG (15 MG, 1 IN 1 D) ORAL
     Route: 048
     Dates: start: 20070612, end: 20071025
  2. ACTOS [Suspect]
     Indication: TYPE 2 DIABETES MELLITUS
     Dosage: 15 MG (15 MG, 1 IN 1 D) ORAL; 30 MG (15 MG, 1 IN 1 D) ORAL
     Route: 048
     Dates: start: 20071026
  3. LERCANIDIPINE [Concomitant]
  4. AMLODIPINE BESYLATE [Concomitant]
  5. ENDOTELON (VITIS VINIFERA, HERBAL EXTRACT NOS) [Concomitant]
  6. GLUCOPHAGE [Concomitant]
  7. HYTACAND (HYDROCHLOROTHIAZIDE, CANDESARTAN CILEXETIL) [Concomitant]
  8. COAPROVEL (HYDROCHLOROTHIAZIDDE, IRBESARTAN) [Concomitant]
  9. XATRAL (ALFUZOSIN) [Concomitant]
  10. FENOFIBRATE [Concomitant]

REACTIONS (6)
  - ACUTE PULMONARY OEDEMA [None]
  - CARDIAC FAILURE [None]
  - CARDIOMEGALY [None]
  - HYPERTENSION [None]
  - MITRAL VALVE INCOMPETENCE [None]
  - SUPRAVENTRICULAR EXTRASYSTOLES [None]
